FAERS Safety Report 25453048 (Version 1)
Quarter: 2025Q2

REPORT INFORMATION
  Report Type: Report from Study
  Country: US (occurrence: US)
  Receive Date: 20250618
  Receipt Date: 20250618
  Transmission Date: 20250717
  Serious: Yes (Hospitalization)
  Sender: GILEAD
  Company Number: US-GILEAD-2025-0717469

PATIENT
  Sex: Female

DRUGS (1)
  1. AMBRISENTAN [Suspect]
     Active Substance: AMBRISENTAN
     Indication: Pulmonary arterial hypertension
     Dosage: LETAIRIS 5MG ORALLY DAILY
     Route: 048
     Dates: start: 20250422

REACTIONS (5)
  - Heart rate irregular [Unknown]
  - Hypotension [Unknown]
  - Renal disorder [Unknown]
  - Blood potassium abnormal [Unknown]
  - Nasal congestion [Unknown]
